FAERS Safety Report 9307911 (Version 1)
Quarter: 2013Q2

REPORT INFORMATION
  Report Type: Spontaneous
  Country: US (occurrence: US)
  Receive Date: 20130524
  Receipt Date: 20130524
  Transmission Date: 20140414
  Serious: Yes (Other)
  Sender: FDA-Public Use
  Company Number: PHEH2013US011337

PATIENT
  Age: 33 Year
  Sex: Male
  Weight: 68.27 kg

DRUGS (1)
  1. GILENYA [Suspect]
     Dosage: UNK UKN, UNK
     Route: 048
     Dates: end: 20130507

REACTIONS (1)
  - Retinal oedema [Recovered/Resolved]
